FAERS Safety Report 8008690-1 (Version None)
Quarter: 2011Q4

REPORT INFORMATION
  Report Type: 
  Country: None (occurrence: None)
  Receive Date: 20111227
  Receipt Date: 20111220
  Transmission Date: 20120403
  Serious: Yes (Hospitalization)
  Sender: FDA-Public Use
  Company Number: US-MERCK-1112USA02979

PATIENT
  Sex: Female

DRUGS (1)
  1. ISENTRESS [Suspect]
     Indication: HIV INFECTION
     Route: 048

REACTIONS (2)
  - LABOUR COMPLICATION [None]
  - MATERNAL EXPOSURE DURING PREGNANCY [None]
